FAERS Safety Report 9103759 (Version 1)
Quarter: 2013Q1

REPORT INFORMATION
  Report Type: Spontaneous
  Country: IT (occurrence: IT)
  Receive Date: 20130219
  Receipt Date: 20130219
  Transmission Date: 20140127
  Serious: Yes (Hospitalization)
  Sender: FDA-Public Use
  Company Number: IT-SANOFI-AVENTIS-2013SA012588

PATIENT
  Age: 77 Year
  Sex: Female

DRUGS (11)
  1. LASIX [Suspect]
     Indication: PRODUCT USED FOR UNKNOWN INDICATION
     Route: 048
     Dates: start: 20120101, end: 20130128
  2. DELTACORTENE [Suspect]
     Indication: POLYMYALGIA RHEUMATICA
     Route: 048
     Dates: start: 20120101, end: 20130128
  3. ATORVASTATIN CALCIUM [Concomitant]
  4. BISOPROLOL FUMARATE [Concomitant]
  5. LANSOPRAZOLE [Concomitant]
  6. LANTUS [Concomitant]
  7. DELAPRIDE [Concomitant]
  8. HUMALOG [Concomitant]
  9. EUTIROX [Concomitant]
  10. ASA [Concomitant]
  11. KANRENOL [Concomitant]

REACTIONS (7)
  - Asthenia [Unknown]
  - Condition aggravated [Unknown]
  - Jaundice [Unknown]
  - Confusional state [Unknown]
  - Nausea [Unknown]
  - Hyperglycaemia [Unknown]
  - Hypokalaemia [Unknown]
